FAERS Safety Report 19586362 (Version 1)
Quarter: 2021Q3

REPORT INFORMATION
  Report Type: Spontaneous
  Country: FR (occurrence: FR)
  Receive Date: 20210721
  Receipt Date: 20210721
  Transmission Date: 20211014
  Serious: Yes (Death, Hospitalization, Other)
  Sender: FDA-Public Use
  Company Number: FR-AUROBINDO-AUR-APL-2021-029553

PATIENT
  Age: 86 Year

DRUGS (1)
  1. TRAMADOL. [Suspect]
     Active Substance: TRAMADOL
     Indication: PRODUCT USED FOR UNKNOWN INDICATION
     Dosage: UNK
     Route: 048

REACTIONS (11)
  - Coma scale abnormal [Fatal]
  - Coma [Fatal]
  - Mydriasis [Unknown]
  - Miosis [Unknown]
  - Multiple organ dysfunction syndrome [Fatal]
  - Toxicity to various agents [Fatal]
  - Hypotension [Unknown]
  - Overdose [Fatal]
  - Acidosis [Fatal]
  - Tachycardia [Unknown]
  - Cardio-respiratory arrest [Fatal]
